FAERS Safety Report 4938479-9 (Version None)
Quarter: 2006Q1

REPORT INFORMATION
  Report Type: 
  Country: None (occurrence: None)
  Receive Date: 20060306
  Receipt Date: 20060217
  Transmission Date: 20060701
  Serious: Yes (Hospitalization)
  Sender: FDA-Public Use
  Company Number: US_0508120948

PATIENT
  Age: 57 Year
  Sex: Female
  Weight: 49.7 kg

DRUGS (19)
  1. LY231514 (PEMETREXED) VIAL [Suspect]
     Indication: NON-SMALL CELL LUNG CANCER
     Dosage: 500 MG/M2, INTRAVENOUS
     Route: 042
     Dates: start: 20050722, end: 20050805
  2. GEMCITABINE HYDROCHLORIDE (GEMCITABINE HYDROCHLORIDE) VIAL [Suspect]
     Indication: NON-SMALL CELL LUNG CANCER
     Dosage: 1500 MG/M2, INTRAVENOUS
     Route: 042
     Dates: start: 20050722, end: 20050805
  3. ADVAIR DISKUS 100/50 [Concomitant]
  4. CERTAGEN [Concomitant]
  5. DEXAMETHASONE [Concomitant]
  6. FOLIC ACID [Concomitant]
  7. GABAPENTIN [Concomitant]
  8. ACETAMINOPHEN W/HYDROCODONE (ACETAMINOPHEN  W/HYDROCODONE) [Concomitant]
  9. LIDOCAINE [Concomitant]
  10. LOPERAMIDE HCL [Concomitant]
  11. LORAZEPAM [Concomitant]
  12. MAGIC MOUTHWASH (MAGIC MOUTHWASH) [Concomitant]
  13. MEGACE [Concomitant]
  14. MERCAPTOPURINE [Concomitant]
  15. PREDNISOLONE [Concomitant]
  16. PREMARIN [Concomitant]
  17. PREDNISONE TAB [Concomitant]
  18. PROCHLORPERAZINE MALEATE (PROCHLORPERAZINE MALEATE) [Concomitant]
  19. VITAMIN B12 [Concomitant]

REACTIONS (20)
  - ANAEMIA [None]
  - BLOOD MAGNESIUM DECREASED [None]
  - CHILLS [None]
  - DIZZINESS [None]
  - EYE PAIN [None]
  - FEBRILE NEUTROPENIA [None]
  - GAIT DISTURBANCE [None]
  - HERPES SIMPLEX [None]
  - HYPOAESTHESIA [None]
  - INJURY [None]
  - INTERSTITIAL LUNG DISEASE [None]
  - LACRIMATION INCREASED [None]
  - LOCALISED INFECTION [None]
  - OXYGEN SATURATION DECREASED [None]
  - PARAESTHESIA [None]
  - PNEUMONIA [None]
  - SKIN LESION [None]
  - SOMNOLENCE [None]
  - STAPHYLOCOCCAL INFECTION [None]
  - TREATMENT NONCOMPLIANCE [None]
